FAERS Safety Report 9162342 (Version 1)
Quarter: 2013Q1

REPORT INFORMATION
  Report Type: Spontaneous
  Country: US (occurrence: US)
  Receive Date: 20130314
  Receipt Date: 20130314
  Transmission Date: 20140127
  Serious: Yes (Other)
  Sender: FDA-Public Use
  Company Number: US-PFIZER INC-2013084849

PATIENT
  Age: 78 Year
  Sex: Male
  Weight: 82.99 kg

DRUGS (2)
  1. TOVIAZ [Suspect]
     Indication: URINARY INCONTINENCE
     Dosage: 8 MG, 1X/DAY
     Dates: start: 2012
  2. SINEMET [Concomitant]
     Indication: PARKINSON^S DISEASE
     Dosage: CARBIDOPA 25MG/ LEVODOPA 100MG, 7X/ DAY

REACTIONS (1)
  - Urinary retention [Unknown]
